FAERS Safety Report 4319485-4 (Version None)
Quarter: 2004Q1

REPORT INFORMATION
  Report Type: 
  Country: None (occurrence: None)
  Receive Date: 20040318
  Receipt Date: 20040318
  Transmission Date: 20041129
  Serious: Yes (Other)
  Sender: FDA-Public Use
  Company Number: None

PATIENT
  Age: 73 Year
  Sex: Female

DRUGS (8)
  1. CRESTOR [Suspect]
     Indication: HYPERLIPIDAEMIA
     Dosage: 10 MG QD ORAL
     Route: 048
     Dates: start: 20040123, end: 20040224
  2. ZETIA [Suspect]
     Indication: HYPERLIPIDAEMIA
     Dosage: 10 MG QD ORAL
     Route: 048
     Dates: start: 20031017, end: 20040224
  3. CITALOPRAM [Concomitant]
  4. LISINOPRIL [Concomitant]
  5. ZOPIDEM [Concomitant]
  6. ASPIRIN [Concomitant]
  7. SPIRONOLACTONE [Concomitant]
  8. GABAPENTIN [Concomitant]

REACTIONS (3)
  - CONFUSIONAL STATE [None]
  - FEELING JITTERY [None]
  - PAIN [None]
